FAERS Safety Report 6086777-0 (Version None)
Quarter: 2009Q1

REPORT INFORMATION
  Report Type: 
  Country: None (occurrence: None)
  Receive Date: 20090223
  Receipt Date: 20090212
  Transmission Date: 20090719
  Serious: Yes (Hospitalization)
  Sender: FDA-Public Use
  Company Number: HK-JNJFOC-20090106075

PATIENT
  Sex: Male

DRUGS (5)
  1. REMICADE [Suspect]
     Dosage: 7TH INFUSION
     Route: 042
  2. REMICADE [Suspect]
     Indication: ANKYLOSING SPONDYLITIS
     Dosage: NOTED AS TREATMENT ^BEFORE TB^
     Route: 042
  3. METHOTREXATE [Concomitant]
     Dosage: NOTED AS TREATMENT ^BEFORE TB^
  4. FOLIC ACID [Concomitant]
     Dosage: NOTED AS TREATMENT ^BEFORE TB^
  5. NAPROXEN [Concomitant]
     Dosage: NOTED AS ^BEFORE TB^

REACTIONS (2)
  - PNEUMOTHORAX [None]
  - PULMONARY TUBERCULOSIS [None]
